FAERS Safety Report 23828571 (Version 1)
Quarter: 2024Q2

REPORT INFORMATION
  Report Type: Spontaneous
  Country: SE (occurrence: SE)
  Receive Date: 20240508
  Receipt Date: 20240508
  Transmission Date: 20240716
  Serious: Yes (Hospitalization)
  Sender: FDA-Public Use
  Company Number: None

PATIENT
  Age: 67 Year
  Sex: Male
  Weight: 111 kg

DRUGS (9)
  1. DALBAVANCIN HYDROCHLORIDE [Suspect]
     Active Substance: DALBAVANCIN HYDROCHLORIDE
     Indication: Infection
     Dosage: 500MG X 2, 1 TIME/WEEK DOSE: LATER DOSE
     Route: 042
     Dates: start: 20240404, end: 20240404
  2. Oxycodone depot 1a farma [Concomitant]
     Indication: Product used for unknown indication
     Dosage: 1 TABLET, 2 TIMES DAILY
     Route: 048
     Dates: start: 20240404, end: 20240404
  3. ACETAMINOPHEN [Concomitant]
     Active Substance: ACETAMINOPHEN
     Indication: Product used for unknown indication
     Dosage: 2 TABLETS 3 TIMES/DAY?NOVUM
     Route: 048
     Dates: start: 20240404, end: 20240404
  4. INSULIN LISPRO [Concomitant]
     Active Substance: INSULIN LISPRO
     Indication: Product used for unknown indication
     Dosage: 10 E ONCE/DAY
     Route: 058
     Dates: start: 20240404, end: 20240404
  5. METFORMIN HYDROCHLORIDE [Concomitant]
     Active Substance: METFORMIN HYDROCHLORIDE
     Indication: Product used for unknown indication
     Dosage: 1 TABLET 2 TIMES DAILY
     Route: 048
     Dates: start: 20240404, end: 20240404
  6. VALACYCLOVIR HYDROCHLORIDE [Concomitant]
     Active Substance: VALACYCLOVIR HYDROCHLORIDE
     Indication: Product used for unknown indication
     Dosage: 1 TABLET 2 TIMES/DAY
     Route: 048
     Dates: start: 20240404, end: 20240404
  7. ENALAPRIL [Concomitant]
     Active Substance: ENALAPRIL
     Indication: Product used for unknown indication
     Dosage: 20 MG 1 TIME/DAY
     Route: 048
     Dates: start: 20240404, end: 20240404
  8. FILGRASTIM [Concomitant]
     Active Substance: FILGRASTIM
     Indication: Product used for unknown indication
     Dosage: 1 PC 1 TIME/DAY
     Route: 058
     Dates: start: 20240404, end: 20240404
  9. TOUJEO [Concomitant]
     Active Substance: INSULIN GLARGINE
     Indication: Product used for unknown indication
     Dosage: 50E 1 TIME PER DAY
     Route: 058
     Dates: start: 20240404, end: 20240404

REACTIONS (7)
  - Erythema [Recovered/Resolved]
  - Ear discomfort [Recovered/Resolved]
  - Dyspnoea [Recovered/Resolved]
  - Cough [Recovered/Resolved]
  - Skin swelling [Recovered/Resolved]
  - Blister [Recovered/Resolved]
  - Wheezing [Recovered/Resolved]

NARRATIVE: CASE EVENT DATE: 20240404
